FAERS Safety Report 13678299 (Version 1)
Quarter: 2017Q2

REPORT INFORMATION
  Report Type: Spontaneous
  Country: US (occurrence: US)
  Receive Date: 20170621
  Receipt Date: 20170621
  Transmission Date: 20170830
  Serious: Yes (Hospitalization, Disabling, Other)
  Sender: FDA-Public Use
  Company Number: None

PATIENT
  Age: 63 Year
  Sex: Female
  Weight: 74.25 kg

DRUGS (6)
  1. KLONIPIN [Suspect]
     Active Substance: CLONAZEPAM
     Indication: PRODUCT USED FOR UNKNOWN INDICATION
     Route: 048
     Dates: start: 20101110, end: 20130208
  2. SEALOGICA (SEA VEGATABLES) [Concomitant]
  3. CERE VEN [Concomitant]
  4. LANTUS [Concomitant]
     Active Substance: INSULIN GLARGINE
  5. SOLARSTAR INSULIN [Concomitant]
  6. THYRAXIS-PT [Concomitant]

REACTIONS (8)
  - Herpes zoster [None]
  - Type 2 diabetes mellitus [None]
  - Derealisation [None]
  - Crying [None]
  - Cognitive disorder [None]
  - Insomnia [None]
  - Anxiety [None]
  - Drug use disorder [None]

NARRATIVE: CASE EVENT DATE: 20110110
